FAERS Safety Report 9867200 (Version 2)
Quarter: 2014Q1

REPORT INFORMATION
  Report Type: Report from Study
  Country: DE (occurrence: DE)
  Receive Date: 20140204
  Receipt Date: 20140204
  Transmission Date: 20141002
  Serious: Yes (Death)
  Sender: FDA-Public Use
  Company Number: DE-UCBSA-105710

PATIENT
  Age: 62 Year
  Sex: Male

DRUGS (4)
  1. LACOSAMIDE [Suspect]
     Indication: EPILEPSY
     Dosage: 200
     Route: 048
     Dates: start: 20130912, end: 20131022
  2. KEPPRA [Concomitant]
     Indication: EPILEPSY
     Dosage: 1500
     Route: 048
     Dates: start: 2012, end: 20131022
  3. DEXAMETHASON [Concomitant]
     Indication: GLIOBLASTOMA
     Dosage: 2
     Route: 048
     Dates: start: 2013, end: 20131022
  4. PANTOZOL [Concomitant]
     Indication: PROPHYLAXIS
     Dosage: 40
     Route: 048
     Dates: start: 20130911, end: 20131022

REACTIONS (4)
  - Grand mal convulsion [Fatal]
  - Cardiac arrest [Fatal]
  - Respiratory arrest [Fatal]
  - Pulmonary embolism [Fatal]
